FAERS Safety Report 12287273 (Version 1)
Quarter: 2016Q2

REPORT INFORMATION
  Report Type: Spontaneous
  Country: US (occurrence: US)
  Receive Date: 20160420
  Receipt Date: 20160420
  Transmission Date: 20160815
  Serious: No
  Sender: FDA-Public Use
  Company Number: US-MYLANLABS-2016M1010742

PATIENT
  Sex: Male

DRUGS (1)
  1. FENOFIBRIC ACID DELAYED-RELEASE CAPSULES [Suspect]
     Active Substance: FENOFIBRIC ACID
     Dosage: 135 MG, QD
     Route: 048
     Dates: start: 201602, end: 201602

REACTIONS (1)
  - Dizziness [Recovered/Resolved]

NARRATIVE: CASE EVENT DATE: 201602
